FAERS Safety Report 9404382 (Version 1)
Quarter: 2013Q3

REPORT INFORMATION
  Report Type: Spontaneous
  Country: FR (occurrence: FR)
  Receive Date: 20130717
  Receipt Date: 20130717
  Transmission Date: 20140515
  Serious: Yes (Hospitalization)
  Sender: FDA-Public Use
  Company Number: FR-RANBAXY-2013RR-71179

PATIENT
  Age: 71 Year
  Sex: Male

DRUGS (15)
  1. AMOXICILLIN [Suspect]
     Indication: PROSTATITIS
     Dosage: UNK
     Route: 048
     Dates: start: 20130404, end: 20130409
  2. TAVANIC [Suspect]
     Indication: PROSTATITIS
     Dosage: UNK
     Route: 042
     Dates: start: 20130525, end: 20130527
  3. AUGMENTIN [Suspect]
     Indication: PROSTATITIS
     Dosage: UNK
     Route: 048
     Dates: start: 20130517
  4. ROCEPHINE [Suspect]
     Indication: PROSTATITIS
     Dosage: UNK
     Route: 042
     Dates: start: 20130521, end: 20130523
  5. ROCEPHINE [Suspect]
     Indication: PROSTATITIS
     Dosage: UNK
     Route: 042
     Dates: start: 20130527, end: 20130530
  6. OFLOCET [Suspect]
     Indication: PROSTATITIS
     Dosage: UNK
     Route: 042
     Dates: start: 20130521, end: 20130525
  7. BACTRIM [Concomitant]
     Indication: PRODUCT USED FOR UNKNOWN INDICATION
     Dosage: UNK
     Route: 065
     Dates: start: 20130527, end: 20130530
  8. CEFOTAXIME [Concomitant]
     Indication: PRODUCT USED FOR UNKNOWN INDICATION
     Dosage: UNK
     Route: 065
     Dates: start: 20130530, end: 20130610
  9. GENTAMICINE [Concomitant]
     Indication: PRODUCT USED FOR UNKNOWN INDICATION
     Dosage: UNK
     Route: 065
     Dates: start: 20130530, end: 20130602
  10. CIPROFLOXACIN [Concomitant]
     Indication: PRODUCT USED FOR UNKNOWN INDICATION
     Dosage: UNK
     Route: 065
     Dates: start: 20130602, end: 20130610
  11. ATORVASTATINE [Concomitant]
     Indication: PRODUCT USED FOR UNKNOWN INDICATION
     Dosage: UNK
     Route: 065
  12. ZOFENIL [Concomitant]
     Indication: PRODUCT USED FOR UNKNOWN INDICATION
     Dosage: UNK
     Route: 065
  13. LESCOL [Concomitant]
     Indication: PRODUCT USED FOR UNKNOWN INDICATION
     Dosage: UNK
     Route: 065
  14. KARDEGIC [Concomitant]
     Indication: PRODUCT USED FOR UNKNOWN INDICATION
     Dosage: UNK
     Route: 065
  15. ATARAX [Concomitant]
     Indication: PRODUCT USED FOR UNKNOWN INDICATION
     Dosage: UNK
     Route: 065

REACTIONS (1)
  - Drug reaction with eosinophilia and systemic symptoms [Recovering/Resolving]
